FAERS Safety Report 9165933 (Version 2)
Quarter: 2013Q1

REPORT INFORMATION
  Report Type: Spontaneous
  Country: US (occurrence: US)
  Receive Date: 20130315
  Receipt Date: 20130326
  Transmission Date: 20140127
  Serious: Yes (Hospitalization)
  Sender: FDA-Public Use
  Company Number: US-PFIZER INC-2013085380

PATIENT
  Age: 61 Year
  Sex: Female

DRUGS (16)
  1. VISTARIL [Suspect]
     Dosage: UNK
  2. EFFEXOR XR [Suspect]
     Dosage: 150 MG, UNK
  3. SERTRALINE HCL [Suspect]
     Dosage: 50 MG, UNK
  4. CRESTOR [Suspect]
     Dosage: 10 MG, UNK
  5. LEVOTHYROXINE [Suspect]
     Dosage: UNK
  6. DORZOLAMIDE [Suspect]
     Dosage: UNK
  7. ALPHAGAN [Concomitant]
     Dosage: UNK
  8. CO-Q-10 [Concomitant]
     Dosage: UNK
  9. ONE-A-DAY [Concomitant]
     Dosage: UNK
  10. FISH OIL [Concomitant]
     Dosage: UNK
  11. GINKGO BILOBA [Concomitant]
     Dosage: UNK
  12. VITAMIN D3 [Concomitant]
     Dosage: UNK
  13. VITAMIN B12 [Concomitant]
     Dosage: UNK
  14. LATANOPROST [Concomitant]
     Dosage: UNK
  15. TIMOLOL MALEATE [Concomitant]
     Dosage: UNK
  16. VITAMIN E [Concomitant]
     Dosage: UNK

REACTIONS (1)
  - Depression [Unknown]
